FAERS Safety Report 4274523-2 (Version None)
Quarter: 2004Q1

REPORT INFORMATION
  Report Type: 
  Country: None (occurrence: None)
  Receive Date: 20040120
  Receipt Date: 20040120
  Transmission Date: 20041129
  Serious: Yes (Hospitalization)
  Sender: FDA-Public Use
  Company Number: None

PATIENT
  Age: 43 Year
  Sex: Female
  Weight: 61.2356 kg

DRUGS (1)
  1. LISINOPRIL [Suspect]
     Indication: HYPERTENSION
     Dosage: 10 MG DAY ORAL
     Route: 048
     Dates: start: 20001101, end: 20040102

REACTIONS (4)
  - ABDOMINAL PAIN [None]
  - ASCITES [None]
  - ILEITIS [None]
  - VOMITING [None]
